FAERS Safety Report 4767159-8 (Version None)
Quarter: 2005Q3

REPORT INFORMATION
  Report Type: 
  Country: None (occurrence: None)
  Receive Date: 20050909
  Receipt Date: 20050909
  Transmission Date: 20060218
  Serious: Yes (Hospitalization)
  Sender: FDA-Public Use
  Company Number: None

PATIENT
  Age: 14 Year
  Sex: Male
  Weight: 57 kg

DRUGS (2)
  1. GEODON [Suspect]
     Indication: OPPOSITIONAL DEFIANT DISORDER
     Dosage: 20 MG DAILY PO
     Route: 048
     Dates: start: 20050722, end: 20050823
  2. GEODON [Suspect]
     Indication: POST-TRAUMATIC STRESS DISORDER
     Dosage: 20 MG DAILY PO
     Route: 048
     Dates: start: 20050722, end: 20050823

REACTIONS (3)
  - ATRIOVENTRICULAR BLOCK FIRST DEGREE [None]
  - ELECTROCARDIOGRAM ABNORMAL [None]
  - ELECTROCARDIOGRAM QT CORRECTED INTERVAL PROLONGED [None]
